FAERS Safety Report 15724785 (Version 2)
Quarter: 2019Q2

REPORT INFORMATION
  Report Type: Spontaneous
  Country: JP (occurrence: JP)
  Receive Date: 20181214
  Receipt Date: 20190424
  Transmission Date: 20190711
  Serious: Yes (Hospitalization)
  Sender: FDA-Public Use
  Company Number: JP-ALLERGAN-1857306US

PATIENT
  Sex: Male
  Weight: 49 kg

DRUGS (5)
  1. TIAPRIDE [Concomitant]
     Active Substance: TIAPRIDE
     Dosage: UNK
  2. DONEPEZIL. [Concomitant]
     Active Substance: DONEPEZIL
  3. MEMANTINE HCL - BP [Suspect]
     Active Substance: MEMANTINE
     Indication: NEURODEGENERATIVE DISORDER
     Dosage: 10 MG, QD
     Route: 065
  4. ARIPIPRAZOLE. [Concomitant]
     Active Substance: ARIPIPRAZOLE
  5. QUETIAPINE. [Concomitant]
     Active Substance: QUETIAPINE

REACTIONS (3)
  - Hallucination, visual [Unknown]
  - Altered state of consciousness [Unknown]
  - Insomnia [Unknown]
